FAERS Safety Report 24713353 (Version 4)
Quarter: 2025Q2

REPORT INFORMATION
  Report Type: Spontaneous
  Country: US (occurrence: US)
  Receive Date: 20241209
  Receipt Date: 20250604
  Transmission Date: 20250717
  Serious: No
  Sender: CALLIDITAS THERAPEUTICS AB
  Company Number: US-Calliditas-2024CAL02775

PATIENT
  Age: 51 Year
  Sex: Female

DRUGS (8)
  1. TARPEYO [Suspect]
     Active Substance: BUDESONIDE
     Indication: IgA nephropathy
     Route: 048
     Dates: start: 20241006
  2. LISINOPRIL [Concomitant]
     Active Substance: LISINOPRIL
  3. LIPITOR [Concomitant]
     Active Substance: ATORVASTATIN CALCIUM
  4. FARXIGA [Concomitant]
     Active Substance: DAPAGLIFLOZIN PROPANEDIOL
  5. FISH OIL [Concomitant]
     Active Substance: FISH OIL
  6. VITAMIN D3 [Concomitant]
     Active Substance: CHOLECALCIFEROL
  7. POTASSIUM CHLORIDE [Concomitant]
     Active Substance: POTASSIUM CHLORIDE
  8. HI-POTENCY B-COMPOUND [Concomitant]

REACTIONS (9)
  - Muscle spasms [Not Recovered/Not Resolved]
  - Weight increased [Recovering/Resolving]
  - Cushingoid [Unknown]
  - Hirsutism [Unknown]
  - Gastrooesophageal reflux disease [Recovering/Resolving]
  - Prescribed underdose [Unknown]
  - Product residue present [Unknown]
  - Pruritus [Unknown]
  - Contusion [Unknown]
